FAERS Safety Report 6372992-5 (Version None)
Quarter: 2009Q3

REPORT INFORMATION
  Report Type: 
  Country: None (occurrence: None)
  Receive Date: 20090924
  Receipt Date: 20081218
  Transmission Date: 20100115
  Serious: No
  Sender: FDA-Public Use
  Company Number: US-ASTRAZENECA-2008UW28303

PATIENT
  Age: 13 Year
  Sex: Male

DRUGS (6)
  1. SEROQUEL [Suspect]
     Route: 048
  2. VYVANSE [Suspect]
  3. ADDERALL 10 [Concomitant]
  4. CONCERTA [Concomitant]
  5. ABILIFY [Concomitant]
  6. CLONIDINE [Concomitant]

REACTIONS (1)
  - TIC [None]
